FAERS Safety Report 25028919 (Version 4)
Quarter: 2025Q4

REPORT INFORMATION
  Report Type: Spontaneous
  Country: EU (occurrence: EU)
  Receive Date: 20250302
  Receipt Date: 20251031
  Transmission Date: 20260117
  Serious: Yes (Other)
  Sender: JOHNSON AND JOHNSON
  Company Number: EU-JNJFOC-20250230786

PATIENT
  Age: 63 Year
  Sex: Female
  Weight: 63 kg

DRUGS (6)
  1. RYBREVANT [Suspect]
     Active Substance: AMIVANTAMAB-VMJW
     Indication: Non-small cell lung cancer metastatic
     Dosage: INFUSION 2
     Route: 065
     Dates: start: 20241230
  2. RYBREVANT [Suspect]
     Active Substance: AMIVANTAMAB-VMJW
     Dosage: INFUSION 7
     Route: 065
     Dates: start: 20250120
  3. RYBREVANT [Suspect]
     Active Substance: AMIVANTAMAB-VMJW
     Dosage: INFUSION 8
     Route: 065
     Dates: start: 20250411
  4. RYBREVANT [Suspect]
     Active Substance: AMIVANTAMAB-VMJW
     Dosage: INFUSION 11
     Route: 065
     Dates: start: 20250721
  5. PEMETREXED [Concomitant]
     Active Substance: PEMETREXED
     Indication: Product used for unknown indication
     Dosage: DOSE MODIFICATION SINCE LAST VISIT ON 30-DEC-2024
  6. CARBOPLATIN [Concomitant]
     Active Substance: CARBOPLATIN
     Indication: Product used for unknown indication
     Dosage: DOSE MODIFICATION SINCE LAST VISIT  30-DEC-2024 CURRENT DOSE 331 MG/ML/MIN
     Dates: start: 20250411

REACTIONS (6)
  - Febrile bone marrow aplasia [Unknown]
  - Non-small cell lung cancer metastatic [Unknown]
  - Dermatitis acneiform [Unknown]
  - Tongue oedema [Unknown]
  - Off label use [Unknown]
  - Inappropriate schedule of product administration [Unknown]
